FAERS Safety Report 8004447-6 (Version None)
Quarter: 2011Q4

REPORT INFORMATION
  Report Type: 
  Country: None (occurrence: None)
  Receive Date: 20111221
  Receipt Date: 20111221
  Transmission Date: 20120403
  Serious: No
  Sender: FDA-Public Use
  Company Number: None

PATIENT
  Sex: Female
  Weight: 112.4921 kg

DRUGS (1)
  1. CLEOCIN [Suspect]
     Indication: ANTIBIOTIC PROPHYLAXIS
     Dosage: 150MG 3 TIMES DAILY BY MOUTH
     Route: 048
     Dates: start: 20111107

REACTIONS (3)
  - VOMITING PROJECTILE [None]
  - NAUSEA [None]
  - DIARRHOEA [None]
